FAERS Safety Report 9498626 (Version 1)
Quarter: 2013Q3

REPORT INFORMATION
  Report Type: Spontaneous
  Country: US (occurrence: US)
  Receive Date: 20130904
  Receipt Date: 20130904
  Transmission Date: 20140515
  Serious: No
  Sender: FDA-Public Use
  Company Number: US-PFIZER INC-2013252696

PATIENT
  Sex: Female

DRUGS (11)
  1. NEURONTIN [Suspect]
     Dosage: UNK
  2. HYDROCHLOROTHIAZIDE [Suspect]
     Dosage: UNK
  3. LISINOPRIL [Suspect]
     Dosage: UNK
  4. PERCODAN [Suspect]
     Dosage: UNK
  5. ABILIFY [Suspect]
     Dosage: UNK
  6. CODEINE [Suspect]
     Dosage: UNK
  7. COZAAR [Suspect]
     Dosage: UNK
  8. DARVOCET [Suspect]
     Dosage: UNK
  9. DEPAKOTE [Suspect]
     Dosage: UNK
  10. LITHIUM CARBONATE [Suspect]
     Dosage: UNK
  11. LOSARTAN [Suspect]
     Dosage: UNK

REACTIONS (1)
  - Drug hypersensitivity [Unknown]
